FAERS Safety Report 10065368 (Version 1)
Quarter: 2014Q2

REPORT INFORMATION
  Report Type: Spontaneous
  Country: US (occurrence: US)
  Receive Date: 20140408
  Receipt Date: 20140408
  Transmission Date: 20141212
  Serious: Yes (Hospitalization)
  Sender: FDA-Public Use
  Company Number: US-ROXANE LABORATORIES, INC.-2014-RO-00540RO

PATIENT
  Age: 52 Year
  Sex: Female

DRUGS (3)
  1. METHADONE [Suspect]
     Indication: PAIN MANAGEMENT
     Dosage: 10 MG
     Route: 065
  2. ONDANSETRON [Suspect]
     Indication: PRODUCT USED FOR UNKNOWN INDICATION
     Route: 065
  3. FLUOXETINE [Suspect]
     Indication: PRODUCT USED FOR UNKNOWN INDICATION
     Route: 065

REACTIONS (1)
  - Stress cardiomyopathy [Unknown]
